FAERS Safety Report 8624941-4 (Version None)
Quarter: 2012Q3

REPORT INFORMATION
  Report Type: 
  Country: None (occurrence: None)
  Receive Date: 20120827
  Receipt Date: 20120824
  Transmission Date: 20120928
  Serious: Yes (Hospitalization, Other)
  Sender: FDA-Public Use
  Company Number: US-PFIZER INC-2012192575

PATIENT
  Age: 64 Year
  Sex: Female
  Weight: 81.179 kg

DRUGS (1)
  1. LYRICA [Suspect]
     Indication: FIBROMYALGIA
     Dosage: 200 MG, 2X/DAY
     Route: 048

REACTIONS (6)
  - MALAISE [None]
  - NEUROPATHY PERIPHERAL [None]
  - FALL [None]
  - VENOUS OCCLUSION [None]
  - GANGRENE [None]
  - PAIN [None]
